FAERS Safety Report 24053172 (Version 3)
Quarter: 2025Q4

REPORT INFORMATION
  Report Type: Report from Study
  Country: KR (occurrence: KR)
  Receive Date: 20240705
  Receipt Date: 20251217
  Transmission Date: 20260117
  Serious: Yes (Hospitalization, Other)
  Sender: ABBVIE
  Company Number: KR-ABBVIE-5823330

PATIENT
  Age: 65 Year
  Sex: Female
  Weight: 58 kg

DRUGS (13)
  1. RINVOQ [Suspect]
     Active Substance: UPADACITINIB
     Indication: Dermatitis atopic
     Dosage: FORM STRENGTH: 15 MILLIGRAM
     Route: 048
     Dates: start: 20230223, end: 20230307
  2. RINVOQ [Suspect]
     Active Substance: UPADACITINIB
     Indication: Dermatitis atopic
     Dosage: FORM STRENGTH: 15 MILLIGRAM
     Route: 048
     Dates: start: 20230316, end: 20230919
  3. RINVOQ [Suspect]
     Active Substance: UPADACITINIB
     Indication: Dermatitis atopic
     Dosage: FORM STRENGTH: 15 MILLIGRAM
     Route: 048
     Dates: start: 20230927
  4. CELEBREX [Concomitant]
     Active Substance: CELECOXIB
     Indication: End stage renal disease
     Dosage: FORM STRENGTH: 200 MILLIGRAM
     Route: 048
     Dates: start: 20230223
  5. ACETAMINOPHEN [Concomitant]
     Active Substance: ACETAMINOPHEN
     Indication: End stage renal disease
     Dosage: TIME INTERVAL: 0.33333333 DAYS: FORM STRENGTH: 650 MILLIGRAM
     Route: 048
     Dates: start: 20230223
  6. ALLEGRA [Concomitant]
     Active Substance: FEXOFENADINE HYDROCHLORIDE
     Indication: End stage renal disease
     Dosage: FORM STRENGTH: 180 MILLIGRAM
     Route: 048
     Dates: start: 20230223
  7. FESTAL PLUS [Concomitant]
     Active Substance: DIMETHICONE\PANCRELIPASE\URSODIOL
     Indication: End stage renal disease
     Dosage: TIME INTERVAL: 0.33333333 DAYS
     Route: 048
     Dates: start: 20230223
  8. ADALAT [Concomitant]
     Active Substance: NIFEDIPINE
     Indication: End stage renal disease
     Dosage: 30
     Route: 048
     Dates: start: 20230323
  9. CARVEDILOL [Concomitant]
     Active Substance: CARVEDILOL
     Indication: End stage renal disease
     Dosage: FORM STRENGTH: 12.5 MILLIGRAM
     Route: 048
     Dates: start: 20230223
  10. Daewon megestrol es [Concomitant]
     Indication: End stage renal disease
     Dosage: SUSPENSION
     Route: 048
     Dates: start: 20230223
  11. PARAMACET SEMI [Concomitant]
     Indication: End stage renal disease
     Route: 048
     Dates: start: 20230223
  12. NEPHVITA [Concomitant]
     Indication: End stage renal disease
     Route: 048
     Dates: start: 20230223
  13. Omed [Concomitant]
     Indication: End stage renal disease
     Dosage: FORM STRENGTH: 20 MILLIGRAM
     Route: 048
     Dates: start: 20230223

REACTIONS (1)
  - Peritonitis [Recovered/Resolved]

NARRATIVE: CASE EVENT DATE: 20230920
